FAERS Safety Report 22816135 (Version 2)
Quarter: 2024Q4

REPORT INFORMATION
  Report Type: Report from Study
  Country: IT (occurrence: IT)
  Receive Date: 20230811
  Receipt Date: 20241230
  Transmission Date: 20250115
  Serious: Yes (Other)
  Sender: VERITY PHARMACEUTICALS INC.
  Company Number: IT-VER-202300004

PATIENT
  Age: 45 Year
  Sex: Female
  Weight: 61 kg

DRUGS (10)
  1. TRIPTORELIN [Suspect]
     Active Substance: TRIPTORELIN
     Indication: Breast cancer
     Dosage: POWDER AND SOLVENT FOR SUSPENSION FOR INJECTION?(STRENGTH: NOT REPORTED). THE BATCH/LOT NUMBER AND E
     Route: 058
     Dates: start: 20180316
  2. HERCEPTIN [Suspect]
     Active Substance: TRASTUZUMAB
     Indication: Breast cancer
     Dosage: FREQUENCY: Q3W - EVERY 3 WEEKS, MOST RECENT DOSE PRIOR TO THE EVENT / START DATE : 22-DEC-2017
     Route: 065
     Dates: end: 20171222
  3. HERCEPTIN [Suspect]
     Active Substance: TRASTUZUMAB
     Indication: Breast cancer
     Dosage: START DATE : 12-JAN-2018
     Route: 065
  4. DEXAMETHASONE [Concomitant]
     Active Substance: DEXAMETHASONE
     Indication: Product used for unknown indication
     Route: 065
     Dates: start: 20171222, end: 20180518
  5. DEXAMETHASONE [Concomitant]
     Active Substance: DEXAMETHASONE
     Indication: Product used for unknown indication
     Route: 065
     Dates: start: 20180608
  6. RANITIDINE [Concomitant]
     Active Substance: RANITIDINE
     Indication: Product used for unknown indication
     Route: 065
     Dates: start: 20171222
  7. TRIMETON [Concomitant]
     Active Substance: CHLORPHENIRAMINE MALEATE
     Indication: Product used for unknown indication
     Route: 065
     Dates: start: 20171222
  8. LETROZOLE [Suspect]
     Active Substance: LETROZOLE
     Indication: Breast cancer
     Route: 048
     Dates: start: 20180427
  9. PERJETA [Suspect]
     Active Substance: PERTUZUMAB
     Indication: Breast cancer
     Dosage: Q3W - EVERY 3 WEEKS, MOST RECENT DOSE PRIOR TO THE EVENT : 12-JAN-2018 (840 MG,3 WK) / START DATE :
     Route: 042
     Dates: end: 20171222
  10. DOCETAXEL [Suspect]
     Active Substance: DOCETAXEL
     Indication: Breast cancer
     Dosage: MOST RECENT DOSE PRIOR TO FIRST EPISODE OF DIARRHEA: 12-JAN-2018 (160 MG),?MOST RECENT DOSE PRIOR TO
     Route: 042
     Dates: end: 20171222

REACTIONS (3)
  - COVID-19 [Recovered/Resolved]
  - Diarrhoea [Recovered/Resolved]
  - Febrile neutropenia [Recovered/Resolved]

NARRATIVE: CASE EVENT DATE: 20180326
